FAERS Safety Report 15068276 (Version 1)
Quarter: 2018Q2

REPORT INFORMATION
  Report Type: Spontaneous
  Country: IN (occurrence: IN)
  Receive Date: 20180626
  Receipt Date: 20180626
  Transmission Date: 20180711
  Serious: Yes (Hospitalization)
  Sender: FDA-Public Use
  Company Number: IN-MYLANLABS-2018M1044944

PATIENT
  Age: 57 Year
  Sex: Female

DRUGS (2)
  1. DEXAMETHASONE. [Concomitant]
     Active Substance: DEXAMETHASONE
     Indication: PREMEDICATION
     Dosage: ADMINISTERED 12 HOURS BEFORE CHEMOTHERAPY
     Route: 065
  2. DOCETAXEL. [Suspect]
     Active Substance: DOCETAXEL
     Indication: BREAST CANCER METASTATIC
     Dosage: 300 MG/M2, RECEIVED THREE DOSES
     Route: 065

REACTIONS (2)
  - Pulmonary oedema [Recovered/Resolved]
  - Capillary leak syndrome [Recovered/Resolved]
